FAERS Safety Report 8338894-X (Version None)
Quarter: 2012Q2

REPORT INFORMATION
  Report Type: 
  Country: None (occurrence: None)
  Receive Date: 20120506
  Receipt Date: 20120412
  Transmission Date: 20120825
  Serious: Yes (Other)
  Sender: FDA-Public Use
  Company Number: PHHY2012KR031815

PATIENT
  Sex: Male
  Weight: 71 kg

DRUGS (1)
  1. SEBIVO [Suspect]
     Indication: HEPATITIS
     Dosage: 600 MG, QD
     Route: 048
     Dates: start: 20100420, end: 20110513

REACTIONS (3)
  - MYOPATHY [None]
  - MUSCULAR WEAKNESS [None]
  - GAIT DISTURBANCE [None]
